FAERS Safety Report 6556863-7 (Version None)
Quarter: 2010Q1

REPORT INFORMATION
  Report Type: 
  Country: None (occurrence: None)
  Receive Date: 20100128
  Receipt Date: 20100122
  Transmission Date: 20100710
  Serious: Yes (Death, Hospitalization, Disabling, Other)
  Sender: FDA-Public Use
  Company Number: PHEH2010US00491

PATIENT
  Sex: Male

DRUGS (7)
  1. AFINITOR [Suspect]
     Indication: RENAL CANCER METASTATIC
     Dosage: 10 MG, QD
     Route: 048
     Dates: start: 20091231, end: 20100105
  2. LASIX [Concomitant]
     Indication: FLUID OVERLOAD
     Dosage: 20 MG, QD
     Route: 048
  3. LASIX [Concomitant]
     Indication: POLYURIA
  4. TUMS [Concomitant]
     Indication: ABDOMINAL DISCOMFORT
     Dosage: UNK, PRN
     Route: 048
  5. MS CONTIN [Concomitant]
     Indication: PAIN
     Dosage: 30 MG, BID
     Route: 048
  6. SIMVASTATIN [Concomitant]
     Indication: BLOOD CHOLESTEROL
     Dosage: 20 MG, QD
     Route: 048
  7. SENNA [Concomitant]
     Indication: CONSTIPATION
     Dosage: 1 BID
     Route: 048

REACTIONS (10)
  - BLOOD CREATININE INCREASED [None]
  - DIARRHOEA [None]
  - DYSPEPSIA [None]
  - FAILURE TO THRIVE [None]
  - FEELING ABNORMAL [None]
  - HALLUCINATION [None]
  - MALAISE [None]
  - MALIGNANT NEOPLASM PROGRESSION [None]
  - PARAESTHESIA [None]
  - RESPIRATORY ARREST [None]
